FAERS Safety Report 7557328-6 (Version None)
Quarter: 2011Q2

REPORT INFORMATION
  Report Type: 
  Country: None (occurrence: None)
  Receive Date: 20110620
  Receipt Date: 20110607
  Transmission Date: 20111010
  Serious: Yes (Hospitalization)
  Sender: FDA-Public Use
  Company Number: SE-JNJFOC-20110601305

PATIENT
  Age: 18 Year
  Sex: Female

DRUGS (4)
  1. REMICADE [Suspect]
     Route: 042
  2. REMICADE [Suspect]
     Indication: JUVENILE ARTHRITIS
     Route: 042
     Dates: start: 20110511
  3. REMICADE [Suspect]
     Route: 042
     Dates: start: 20110527, end: 20110527
  4. METHOTREXATE [Concomitant]

REACTIONS (6)
  - SWELLING [None]
  - HEADACHE [None]
  - INFUSION RELATED REACTION [None]
  - JOINT DISLOCATION [None]
  - CHEST DISCOMFORT [None]
  - DIZZINESS [None]
